FAERS Safety Report 6225515-5 (Version None)
Quarter: 2009Q2

REPORT INFORMATION
  Report Type: 
  Country: None (occurrence: None)
  Receive Date: 20090612
  Receipt Date: 20090505
  Transmission Date: 20091009
  Serious: No
  Sender: FDA-Public Use
  Company Number: US-ABBOTT-09P-163-0569478-00

PATIENT
  Sex: Female
  Weight: 72.64 kg

DRUGS (11)
  1. HUMIRA [Suspect]
     Indication: PSORIATIC ARTHROPATHY
     Dates: start: 20090324, end: 20090426
  2. HUMIRA [Suspect]
     Indication: RHEUMATOID ARTHRITIS
  3. ULTRAM ER [Concomitant]
     Indication: DRUG USE FOR UNKNOWN INDICATION
     Route: 048
  4. DIGOXIN [Concomitant]
     Indication: HEART RATE IRREGULAR
     Route: 048
  5. DIGOXIN [Concomitant]
     Dosage: 0.25 MILLIGRAMS DAILY
  6. LASIX [Concomitant]
     Indication: DRUG USE FOR UNKNOWN INDICATION
     Route: 048
  7. POTASSIUM CHLORIDE [Concomitant]
     Indication: DRUG USE FOR UNKNOWN INDICATION
     Route: 048
  8. CARTIA XT [Concomitant]
     Indication: DRUG USE FOR UNKNOWN INDICATION
     Route: 048
  9. COZAAR [Concomitant]
     Indication: DRUG USE FOR UNKNOWN INDICATION
     Route: 048
  10. PREDNISONE [Concomitant]
     Indication: RHEUMATOID ARTHRITIS
     Route: 048
  11. LORTAB/APAP [Concomitant]
     Indication: PAIN
     Dosage: FORM: 5/500 MILLIGRAMS
     Route: 048

REACTIONS (4)
  - BLISTER [None]
  - BLOOD TEST ABNORMAL [None]
  - PAIN [None]
  - RASH [None]
